FAERS Safety Report 19476861 (Version 1)
Quarter: 2021Q2

REPORT INFORMATION
  Report Type: Spontaneous
  Country: US (occurrence: US)
  Receive Date: 20210629
  Receipt Date: 20210629
  Transmission Date: 20210717
  Serious: Yes (Death, Congenital Anomaly)
  Sender: FDA-Public Use
  Company Number: None

PATIENT
  Age: 79 Year
  Sex: Male

DRUGS (1)
  1. VELTASSA [Suspect]
     Active Substance: PATIROMER
     Indication: HYPERKALAEMIA
     Dosage: 16.8GM +QD BY MOUTH
     Route: 048
     Dates: start: 20191021, end: 20210607

REACTIONS (1)
  - Death [None]

NARRATIVE: CASE EVENT DATE: 20210629
